FAERS Safety Report 7124247-9 (Version None)
Quarter: 2010Q4

REPORT INFORMATION
  Report Type: 
  Country: None (occurrence: None)
  Receive Date: 20101126
  Receipt Date: 20101027
  Transmission Date: 20110411
  Serious: Yes (Hospitalization)
  Sender: FDA-Public Use
  Company Number: GXKR2010GB12103

PATIENT
  Age: 80 Year
  Sex: Female
  Weight: 70 kg

DRUGS (3)
  1. CITALOPRAM (NGX) [Suspect]
     Indication: DEPRESSION
     Dosage: 20 MG, UNK
     Route: 048
     Dates: start: 20100925, end: 20101011
  2. AMISULPRIDE (NGX) [Suspect]
     Dosage: 50 MG, UNK
     Route: 048
     Dates: start: 20100929, end: 20101011
  3. METHOTREXATE [Concomitant]
     Indication: NON-HODGKIN'S LYMPHOMA
     Dosage: UNK
     Route: 037
     Dates: start: 20100901, end: 20100901

REACTIONS (1)
  - NEUTROPENIA [None]
